FAERS Safety Report 21971305 (Version 2)
Quarter: 2023Q2

REPORT INFORMATION
  Report Type: Spontaneous
  Country: US (occurrence: US)
  Receive Date: 20230209
  Receipt Date: 20230418
  Transmission Date: 20230722
  Serious: Yes (Other)
  Sender: FDA-Public Use
  Company Number: US-BRISTOL-MYERS SQUIBB COMPANY-2023-018914

PATIENT
  Age: 82 Year
  Sex: Female

DRUGS (2)
  1. REVLIMID [Suspect]
     Active Substance: LENALIDOMIDE
     Indication: Plasma cell myeloma
     Dosage: FREQ: TAKE 1 CAPSULE BY MOUTH EVERY DAY ON DAYS 1-14, FOLLOWED BY 7 DAYS OFF/TWO WEEKS ON, ONE WEEK
     Route: 048
  2. VELCADE [Concomitant]
     Active Substance: BORTEZOMIB

REACTIONS (3)
  - Nasal congestion [Unknown]
  - Off label use [Unknown]
  - Haemoglobin decreased [Unknown]
